FAERS Safety Report 10049514 (Version 1)
Quarter: 2014Q1

REPORT INFORMATION
  Report Type: Spontaneous
  Country: US (occurrence: None)
  Receive Date: 20140328
  Receipt Date: 20140328
  Transmission Date: 20141002
  Serious: Yes (Death)
  Sender: FDA-Public Use
  Company Number: AUR-APL-2014-03816

PATIENT
  Age: 49 Year
  Sex: Male

DRUGS (8)
  1. AMLODIPINE (AMLODIPINE) [Suspect]
     Indication: PRODUCT USED FOR UNKNOWN INDICATION
     Route: 048
  2. RISPERIDONE (RISPERIDONE) [Suspect]
     Indication: PRODUCT USED FOR UNKNOWN INDICATION
  3. LISINOPRIL (LISINOPRIL) [Suspect]
     Indication: PRODUCT USED FOR UNKNOWN INDICATION
  4. COCAINE (COCAINE) [Suspect]
     Indication: PRODUCT USED FOR UNKNOWN INDICATION
  5. TRAZODONE (TRAZODONE) [Suspect]
     Indication: PRODUCT USED FOR UNKNOWN INDICATION
  6. BENZTROPINE (BENZATROPINE MESILATE) [Suspect]
     Indication: PRODUCT USED FOR UNKNOWN INDICATION
  7. BENZONATATE (BENZONATATE) [Suspect]
     Indication: PRODUCT USED FOR UNKNOWN INDICATION
  8. CHLORTHALIDONE (CHLORTALIDONE) [Suspect]
     Indication: PRODUCT USED FOR UNKNOWN INDICATION

REACTIONS (4)
  - Completed suicide [None]
  - Exposure via ingestion [None]
  - Exposure via inhalation [None]
  - Intentional drug misuse [None]
